FAERS Safety Report 7822670-8 (Version None)
Quarter: 2011Q4

REPORT INFORMATION
  Report Type: 
  Country: None (occurrence: None)
  Receive Date: 20111018
  Receipt Date: 20111015
  Transmission Date: 20120403
  Serious: Yes (Death, Hospitalization)
  Sender: FDA-Public Use
  Company Number: US-ROCHE-1005017

PATIENT
  Age: 68 Year
  Sex: Male
  Weight: 80.5 kg

DRUGS (2)
  1. AVASTIN [Suspect]
     Indication: HEPATIC NEOPLASM MALIGNANT
     Dosage: LAST DOSE: 03/AUG/2011
     Route: 042
     Dates: start: 20110620
  2. TEMSIROLIMUS [Suspect]
     Indication: HEPATIC NEOPLASM MALIGNANT
     Dosage: LAST DOSE: 03/AUG/2011, DOSE DELAYED BY 7 DAYS
     Route: 042
     Dates: start: 20110620

REACTIONS (6)
  - DYSPNOEA [None]
  - PNEUMONITIS [None]
  - DIARRHOEA [None]
  - MUSCULAR WEAKNESS [None]
  - DEATH [None]
  - COLITIS [None]
